FAERS Safety Report 8220217-8 (Version None)
Quarter: 2012Q1

REPORT INFORMATION
  Report Type: 
  Country: None (occurrence: None)
  Receive Date: 20120320
  Receipt Date: 20120308
  Transmission Date: 20120608
  Serious: Yes (Hospitalization)
  Sender: FDA-Public Use
  Company Number: US-BAYER-2012-023912

PATIENT
  Age: 44 Year
  Sex: Female

DRUGS (3)
  1. DROSPIRENONE AND ETHINYL ESTRADIOL [Suspect]
     Dosage: UNK
     Dates: end: 20091001
  2. ACETAMINOPHEN [Concomitant]
     Dosage: UNK
     Dates: start: 20091113
  3. YASMIN [Suspect]
     Dosage: UNK
     Dates: start: 20020521, end: 20091001

REACTIONS (2)
  - PULMONARY EMBOLISM [None]
  - DEEP VEIN THROMBOSIS [None]
